FAERS Safety Report 6141864-3 (Version None)
Quarter: 2009Q2

REPORT INFORMATION
  Report Type: 
  Country: None (occurrence: None)
  Receive Date: 20090402
  Receipt Date: 20090316
  Transmission Date: 20091009
  Serious: Yes (Disabling)
  Sender: FDA-Public Use
  Company Number: FR-JNJFOC-20090303805

PATIENT
  Age: 83 Year
  Sex: Male

DRUGS (6)
  1. RISPERDAL [Suspect]
     Route: 048
  2. RISPERDAL [Suspect]
     Indication: DRUG USE FOR UNKNOWN INDICATION
     Route: 048
  3. DEPAMIDE [Concomitant]
     Route: 065
  4. INSULINE [Concomitant]
     Indication: DIABETES MELLITUS
     Route: 065
  5. SEROPRAM [Concomitant]
     Route: 065
  6. EQUANIL [Concomitant]
     Route: 065

REACTIONS (4)
  - FALL [None]
  - GAIT DISTURBANCE [None]
  - MUSCLE RIGIDITY [None]
  - MUSCULAR WEAKNESS [None]
